FAERS Safety Report 25712974 (Version 1)
Quarter: 2025Q3

REPORT INFORMATION
  Report Type: Other
  Country: CA (occurrence: CA)
  Receive Date: 20250821
  Receipt Date: 20250821
  Transmission Date: 20251021
  Serious: Yes (Other)
  Sender: APOTEX
  Company Number: CA-APOTEX-2024AP020285

PATIENT
  Sex: Male

DRUGS (2)
  1. IMATINIB [Suspect]
     Active Substance: IMATINIB
     Indication: Gastrointestinal stromal tumour
     Dosage: 1 DOSAGE FORM, QD (400 MILLIGRAM)
     Route: 048
     Dates: start: 20241030
  2. IMATINIB [Suspect]
     Active Substance: IMATINIB
     Dosage: 600 MILLIGRAM, QD (1X400MG AND 2X100MG)
     Route: 048
     Dates: start: 202508

REACTIONS (5)
  - Malignant neoplasm progression [Unknown]
  - Product dose omission issue [Unknown]
  - Dyspepsia [Unknown]
  - Nausea [Unknown]
  - Somnolence [Unknown]

NARRATIVE: CASE EVENT DATE: 20240101
